FAERS Safety Report 11102294 (Version 2)
Quarter: 2015Q2

REPORT INFORMATION
  Report Type: Spontaneous
  Country: US (occurrence: US)
  Receive Date: 20150511
  Receipt Date: 20150527
  Transmission Date: 20150821
  Serious: Yes (Life-Threatening, Hospitalization, Other)
  Sender: FDA-Public Use
  Company Number: US-MERCK-1505USA002217

PATIENT
  Age: 82 Year
  Sex: Male

DRUGS (1)
  1. JANUVIA [Suspect]
     Active Substance: SITAGLIPTIN PHOSPHATE
     Indication: DIABETES MELLITUS
     Dosage: 25 MG, QD (1 TABLET DAILY)
     Route: 048

REACTIONS (5)
  - Fall [Recovering/Resolving]
  - Dialysis [Recovering/Resolving]
  - Medical device complication [Recovering/Resolving]
  - Blood glucose abnormal [Recovering/Resolving]
  - Unresponsive to stimuli [Recovering/Resolving]

NARRATIVE: CASE EVENT DATE: 201504
